FAERS Safety Report 21242343 (Version 1)
Quarter: 2022Q3

REPORT INFORMATION
  Report Type: Report from Study
  Country: US (occurrence: US)
  Receive Date: 20220823
  Receipt Date: 20220823
  Transmission Date: 20221027
  Serious: Yes (Other)
  Sender: FDA-Public Use
  Company Number: US-VALIDUS PHARMACEUTICALS LLC-US-VDP-2022-015670

PATIENT

DRUGS (4)
  1. LASIX [Suspect]
     Active Substance: FUROSEMIDE
     Indication: Product used for unknown indication
     Dosage: UNK
     Route: 065
  2. OFEV [Suspect]
     Active Substance: NINTEDANIB
     Indication: Idiopathic pulmonary fibrosis
     Dosage: 300 MILLIGRAM, QD
     Route: 048
     Dates: start: 20170227
  3. OFEV [Suspect]
     Active Substance: NINTEDANIB
     Dosage: UNK
     Route: 048
  4. BUPRENORPHINE [Suspect]
     Active Substance: BUPRENORPHINE
     Indication: Product used for unknown indication
     Dosage: UNK
     Route: 062

REACTIONS (20)
  - Macular degeneration [Unknown]
  - Pneumonia [Unknown]
  - Eczema [Unknown]
  - Defaecation urgency [Unknown]
  - Urinary incontinence [Unknown]
  - Pain [Unknown]
  - Memory impairment [Unknown]
  - Dyspnoea [Unknown]
  - Fatigue [Unknown]
  - Psoriasis [Not Recovered/Not Resolved]
  - Upper limb fracture [Not Recovered/Not Resolved]
  - Nerve compression [Unknown]
  - Neck pain [Unknown]
  - Nasal injury [Unknown]
  - Pain in extremity [Unknown]
  - Arthralgia [Unknown]
  - Hypokinesia [Not Recovered/Not Resolved]
  - Rash [Unknown]
  - Pruritus [Unknown]
  - Pruritus [Unknown]
